FAERS Safety Report 8542392-8 (Version None)
Quarter: 2012Q3

REPORT INFORMATION
  Report Type: 
  Country: None (occurrence: None)
  Receive Date: 20120726
  Receipt Date: 20111012
  Transmission Date: 20120928
  Serious: Yes (Hospitalization)
  Sender: FDA-Public Use
  Company Number: US-ASTRAZENECA-2011SE61313

PATIENT
  Age: 49 Year
  Sex: Female

DRUGS (7)
  1. JANUVIA [Suspect]
     Route: 065
  2. PROZAC [Concomitant]
  3. CRESTOR [Suspect]
     Indication: DYSLIPIDAEMIA
     Route: 048
     Dates: start: 20110101
  4. SEROQUEL [Suspect]
     Indication: BIPOLAR DISORDER
     Route: 048
  5. LITHIUM CARBONATE [Concomitant]
  6. PRILOSEC [Concomitant]
  7. MOTRIN [Concomitant]

REACTIONS (1)
  - PANCREATITIS [None]
